FAERS Safety Report 14392825 (Version 1)
Quarter: 2018Q1

REPORT INFORMATION
  Report Type: Spontaneous
  Country: US (occurrence: US)
  Receive Date: 20180116
  Receipt Date: 20180116
  Transmission Date: 20180509
  Serious: No
  Sender: FDA-Public Use
  Company Number: US-NOVOPROD-568099

PATIENT
  Age: 67 Year
  Sex: Male

DRUGS (2)
  1. TRESIBA [Suspect]
     Active Substance: INSULIN DEGLUDEC
     Indication: PRODUCT USED FOR UNKNOWN INDICATION
     Dosage: 8 U, UNK
     Route: 058
     Dates: start: 201705, end: 2017
  2. TRESIBA [Suspect]
     Active Substance: INSULIN DEGLUDEC
     Dosage: 9 U, UNK
     Route: 058
     Dates: start: 2017

REACTIONS (3)
  - Blood glucose increased [Not Recovered/Not Resolved]
  - Inflammation [Unknown]
  - Product storage error [Unknown]

NARRATIVE: CASE EVENT DATE: 2017
